FAERS Safety Report 15433066 (Version 2)
Quarter: 2019Q3

REPORT INFORMATION
  Report Type: Spontaneous
  Country: NO (occurrence: NO)
  Receive Date: 20180927
  Receipt Date: 20190923
  Transmission Date: 20191004
  Serious: No
  Sender: FDA-Public Use
  Company Number: NO-NOVEN PHARMACEUTICALS, INC.-NO2018000282

PATIENT

DRUGS (1)
  1. ESTRADIOL/NORETHISTERONE ACETATE [Suspect]
     Active Substance: ESTRADIOL\NORETHINDRONE ACETATE
     Indication: MENOPAUSAL SYMPTOMS
     Dosage: 1 PATCH ON SUNDAY AND 1 PATCH ON WEDNESDAY
     Route: 062
     Dates: start: 201705, end: 201806

REACTIONS (7)
  - Swelling [Recovered/Resolved]
  - Erythema [Recovered/Resolved]
  - Scab [Unknown]
  - Insomnia [Unknown]
  - Application site reaction [Unknown]
  - Application site irritation [Recovered/Resolved]
  - Pruritus [Unknown]

NARRATIVE: CASE EVENT DATE: 2018
